FAERS Safety Report 8714055 (Version 5)
Quarter: 2013Q3

REPORT INFORMATION
  Report Type: Spontaneous
  Country: US (occurrence: US)
  Receive Date: 20120808
  Receipt Date: 20130822
  Transmission Date: 20140515
  Serious: Yes (Other)
  Sender: FDA-Public Use
  Company Number: US-ASTRAZENECA-2012SE54516

PATIENT
  Age: 54 Year
  Sex: Female
  Weight: 72.6 kg

DRUGS (20)
  1. SEROQUEL XR [Suspect]
     Indication: BIPOLAR DISORDER
     Route: 048
  2. SEROQUEL XR [Suspect]
     Indication: SLEEP DISORDER
     Route: 048
  3. SEROQUEL XR [Suspect]
     Indication: BIPOLAR DISORDER
     Route: 048
     Dates: end: 2012
  4. SEROQUEL XR [Suspect]
     Indication: SLEEP DISORDER
     Route: 048
     Dates: end: 2012
  5. SEROQUEL XR [Suspect]
     Indication: BIPOLAR DISORDER
     Route: 048
  6. SEROQUEL XR [Suspect]
     Indication: SLEEP DISORDER
     Route: 048
  7. LISINOPRIL HCTZ [Suspect]
     Indication: HYPERTENSION
     Dosage: 20 MG
     Route: 048
  8. LISINOPRIL HCTZ [Suspect]
     Indication: HYPERTENSION
     Dosage: 10 MG
     Route: 048
  9. VIMOVO [Interacting]
     Indication: PAIN
     Route: 048
     Dates: start: 20120326, end: 20120401
  10. OTHER MEDICATIONS [Interacting]
     Route: 065
  11. HYDROXYZINE [Concomitant]
     Indication: ANXIETY
     Route: 048
     Dates: start: 1993
  12. HYDROXYZINE [Concomitant]
     Indication: SINUS DISORDER
     Route: 048
     Dates: start: 1993
  13. HYDROXYZINE [Concomitant]
     Indication: ANXIETY
     Route: 048
     Dates: start: 20120201
  14. HYDROXYZINE [Concomitant]
     Indication: SINUS DISORDER
     Route: 048
     Dates: start: 20120201
  15. HCTZ [Concomitant]
     Indication: HYPERTENSION
     Route: 048
     Dates: start: 20120328
  16. LAMOTRIGINE [Concomitant]
     Indication: BIPOLAR DISORDER
  17. RANITIDINE [Concomitant]
     Indication: GASTROINTESTINAL DISORDER
     Dates: start: 2003
  18. PRAVASTATIN [Concomitant]
     Indication: BLOOD CHOLESTEROL ABNORMAL
     Dates: start: 2012
  19. MIRTAZAPINE [Concomitant]
     Indication: SLEEP DISORDER
     Dates: start: 201308
  20. ABILIFY [Concomitant]

REACTIONS (22)
  - Drug interaction [Recovered/Resolved]
  - Dehydration [Recovered/Resolved]
  - Aphagia [Recovered/Resolved]
  - Hallucination [Recovered/Resolved]
  - Vomiting [Recovered/Resolved]
  - Tachyphrenia [Unknown]
  - Adverse drug reaction [Unknown]
  - Insomnia [Unknown]
  - Loss of consciousness [Unknown]
  - Mental disorder [Unknown]
  - Nervousness [Not Recovered/Not Resolved]
  - Anxiety [Not Recovered/Not Resolved]
  - Road traffic accident [Unknown]
  - Diabetes mellitus [Unknown]
  - Blood pressure increased [Unknown]
  - Hyperhidrosis [Not Recovered/Not Resolved]
  - Weight increased [Unknown]
  - Somnolence [Unknown]
  - Dry mouth [Not Recovered/Not Resolved]
  - Off label use [Unknown]
  - Off label use [Unknown]
  - Drug dose omission [Unknown]
